FAERS Safety Report 16732012 (Version 1)
Quarter: 2019Q3

REPORT INFORMATION
  Report Type: Spontaneous
  Country: JP (occurrence: JP)
  Receive Date: 20190822
  Receipt Date: 20190822
  Transmission Date: 20191005
  Serious: Yes (Hospitalization, Other)
  Sender: FDA-Public Use
  Company Number: JP-ALLERGAN-1934443US

PATIENT
  Sex: Female

DRUGS (1)
  1. BOTOX [Suspect]
     Active Substance: ONABOTULINUMTOXINA
     Indication: FACIAL SPASM
     Dosage: UNK, SINGLE
     Route: 030
     Dates: start: 20190415, end: 20190415

REACTIONS (3)
  - Diplopia [Unknown]
  - Feeling abnormal [Unknown]
  - Endocrine ophthalmopathy [Unknown]

NARRATIVE: CASE EVENT DATE: 20190415
